FAERS Safety Report 15434987 (Version 2)
Quarter: 2018Q4

REPORT INFORMATION
  Report Type: Spontaneous
  Country: US (occurrence: US)
  Receive Date: 20180927
  Receipt Date: 20181011
  Transmission Date: 20190204
  Serious: No
  Sender: FDA-Public Use
  Company Number: US-HORIZON-PEN-1015-2018

PATIENT
  Age: 48 Year
  Sex: Female

DRUGS (1)
  1. PENNSAID [Suspect]
     Active Substance: DICLOFENAC SODIUM
     Indication: ARTHRALGIA
     Dosage: ONE APPLICATION ONE TIME
     Route: 061

REACTIONS (2)
  - Intentional product use issue [Recovered/Resolved]
  - Application site pruritus [Recovered/Resolved]
